FAERS Safety Report 9490092 (Version 1)
Quarter: 2013Q3

REPORT INFORMATION
  Report Type: Spontaneous
  Country: IN (occurrence: IN)
  Receive Date: 20130829
  Receipt Date: 20130829
  Transmission Date: 20140515
  Serious: Yes (Hospitalization)
  Sender: FDA-Public Use
  Company Number: IN-MYLANLABS-2013S1018776

PATIENT
  Age: 4 Year
  Sex: Female

DRUGS (2)
  1. QUININE [Suspect]
     Indication: PYREXIA
     Route: 048
  2. PARACETAMOL [Concomitant]
     Indication: PYREXIA
     Route: 065

REACTIONS (2)
  - Torsade de pointes [Recovered/Resolved]
  - Metabolic acidosis [Unknown]
